FAERS Safety Report 9460485 (Version 1)
Quarter: 2013Q3

REPORT INFORMATION
  Report Type: Spontaneous
  Country: US (occurrence: US)
  Receive Date: 20130815
  Receipt Date: 20130815
  Transmission Date: 20140515
  Serious: Yes (Other)
  Sender: FDA-Public Use
  Company Number: US-ALLERGAN-1312121US

PATIENT
  Age: 59 Year
  Sex: Female

DRUGS (16)
  1. BOTOX [Suspect]
     Indication: MIGRAINE
     Dosage: UNK, SINGLE
     Route: 030
     Dates: start: 20130520, end: 20130520
  2. LYRICA [Concomitant]
     Indication: PAIN
     Dosage: 75 MG, QD
     Route: 048
  3. HYZAAR [Concomitant]
     Indication: HYPERTENSION
     Dosage: 5/12.5MG, QAM
     Route: 048
  4. KLOR-CON [Concomitant]
     Indication: PRODUCT USED FOR UNKNOWN INDICATION
     Dosage: 10 MG, QD
     Route: 048
  5. LEXAPRO [Concomitant]
     Indication: DEPRESSION
     Dosage: 20 MG, QD
     Route: 048
  6. WELLBUTRIN [Concomitant]
     Indication: BIPOLAR I DISORDER
     Dosage: 300 MG, QD
     Route: 048
  7. LAMICTAL [Concomitant]
     Indication: BIPOLAR DISORDER
     Dosage: 200 MG, QD
     Route: 048
  8. AMBIEN [Concomitant]
     Indication: SLEEP DISORDER
     Dosage: 10 MG, QHS
     Route: 048
  9. TRAZODONE [Concomitant]
     Indication: SLEEP DISORDER
     Dosage: 100 MG, QHS
     Route: 048
  10. PROBIOTICS NOS [Concomitant]
     Indication: PRODUCT USED FOR UNKNOWN INDICATION
     Dosage: UNK
  11. TOPIRAMATE [Concomitant]
     Indication: MIGRAINE
     Dosage: 100 MG, QHS
     Route: 048
  12. MVI [Concomitant]
     Indication: SUPPLEMENTATION THERAPY
     Dosage: UNK
  13. MAXALT [Concomitant]
     Indication: MIGRAINE
     Dosage: 10 MG, PRN
     Route: 048
  14. ALLEGRA [Concomitant]
     Indication: HYPERSENSITIVITY
     Dosage: UNK UNK, PRN
     Route: 048
  15. ALLERGY SHOTS NOS [Concomitant]
     Indication: HYPERSENSITIVITY
     Dosage: UNK
  16. XANAX [Concomitant]
     Indication: ANXIETY
     Dosage: .25 MG, PRN
     Route: 048

REACTIONS (4)
  - Suicidal ideation [Recovering/Resolving]
  - Depression [Recovering/Resolving]
  - Anger [Recovering/Resolving]
  - Hypersensitivity [Not Recovered/Not Resolved]
